FAERS Safety Report 7326728-1 (Version None)
Quarter: 2011Q1

REPORT INFORMATION
  Report Type: 
  Country: None (occurrence: None)
  Receive Date: 20110302
  Receipt Date: 20091004
  Transmission Date: 20110831
  Serious: No
  Sender: FDA-Public Use
  Company Number: US-PFIZER INC-2009260012

PATIENT
  Sex: Male

DRUGS (2)
  1. VFEND [Suspect]
     Dosage: 5.88 MG/KG, 2X/DAY
  2. ISOSORBIDE DINITRATE [Suspect]

REACTIONS (2)
  - DRUG LEVEL DECREASED [None]
  - INHIBITORY DRUG INTERACTION [None]
